FAERS Safety Report 5058279-1 (Version None)
Quarter: 2006Q2

REPORT INFORMATION
  Report Type: 
  Country: None (occurrence: None)
  Receive Date: 20060622
  Receipt Date: 20060322
  Transmission Date: 20061013
  Serious: Yes (Hospitalization)
  Sender: FDA-Public Use
  Company Number: US-JNJFOC-20060301698

PATIENT
  Age: 63 Year
  Sex: Female
  Weight: 88.4514 kg

DRUGS (21)
  1. DURAGESIC-100 [Suspect]
     Indication: PAIN
     Dosage: 75 UG/HR, 1 IN 72 HOURS, TRANSDERMAL
     Route: 062
     Dates: start: 20040101
  2. PROTONIX [Concomitant]
  3. LIPITOR [Concomitant]
  4. ASPIRIN [Concomitant]
  5. COLACE (DOCUSATE SODIUM) [Concomitant]
  6. LASIX [Concomitant]
  7. GLUCOPHAGE [Concomitant]
  8. LANTUS INSULIN (INSULIN GLARGINE) SOLUTION [Concomitant]
  9. SYNTHROID [Concomitant]
  10. LEXAPRO (SSRI) [Concomitant]
  11. LOPRESSOR [Concomitant]
  12. TRICOR [Concomitant]
  13. NOVOLIN INSULIN (INSULIN HUMAN INJECTION, ISOPHANE) [Concomitant]
  14. PLAVIX [Concomitant]
  15. LISINOPRIL [Concomitant]
  16. SENOKOT [Concomitant]
  17. SINEMET [Concomitant]
  18. XANAX [Concomitant]
  19. LUNESTA (ALL OTHER THERAPEUTIC PRODUCTS) [Concomitant]
  20. ZANAFLEX [Concomitant]
  21. THEO-DUR [Concomitant]

REACTIONS (1)
  - BACK PAIN [None]
